FAERS Safety Report 25634775 (Version 2)
Quarter: 2025Q3

REPORT INFORMATION
  Report Type: Spontaneous
  Country: BR (occurrence: BR)
  Receive Date: 20250801
  Receipt Date: 20250812
  Transmission Date: 20251020
  Serious: Yes (Death, Other)
  Sender: BRISTOL-MYERS SQUIBB COMPANY
  Company Number: BR-BRISTOL-MYERS SQUIBB COMPANY-2025-107371

PATIENT
  Age: 61 Year
  Sex: Male

DRUGS (2)
  1. ABRAXANE [Suspect]
     Active Substance: PACLITAXEL
     Indication: Adenocarcinoma pancreas
  2. GEMZAR [Concomitant]
     Active Substance: GEMCITABINE HYDROCHLORIDE
     Indication: Adenocarcinoma pancreas
     Dates: start: 20231228

REACTIONS (7)
  - Sepsis [Fatal]
  - Neutropenia [Fatal]
  - Haemorrhage [Fatal]
  - Haemodynamic instability [Fatal]
  - Haemoglobin decreased [Fatal]
  - Abdominal pain [Fatal]
  - Nodule [Fatal]

NARRATIVE: CASE EVENT DATE: 20220901
